FAERS Safety Report 6543413-4 (Version None)
Quarter: 2010Q1

REPORT INFORMATION
  Report Type: 
  Country: None (occurrence: None)
  Receive Date: 20100120
  Receipt Date: 20090429
  Transmission Date: 20100710
  Serious: No
  Sender: FDA-Public Use
  Company Number: US-KINGPHARMUSA00001-K200900514

PATIENT
  Age: 58 Year
  Sex: Female

DRUGS (3)
  1. INTAL [Suspect]
     Indication: ASTHMA
     Dosage: UNK
     Dates: start: 20080801, end: 20080801
  2. FLOVENT [Concomitant]
     Indication: ASTHMA
     Dosage: UNK
  3. COUMADIN [Concomitant]
     Dosage: UNK

REACTIONS (1)
  - ATRIAL FIBRILLATION [None]
